FAERS Safety Report 22656036 (Version 1)
Quarter: 2023Q2

REPORT INFORMATION
  Report Type: Report from Study
  Country: US (occurrence: US)
  Receive Date: 20230629
  Receipt Date: 20230629
  Transmission Date: 20230721
  Serious: Yes (Death, Hospitalization)
  Sender: FDA-Public Use
  Company Number: US-MYLANLABS-2023M1069527

PATIENT
  Age: 54 Year
  Sex: Female

DRUGS (2)
  1. TACROLIMUS [Suspect]
     Active Substance: TACROLIMUS
     Indication: Immunosuppressant drug therapy
     Dosage: UNK
     Route: 065
  2. VORICONAZOLE [Suspect]
     Active Substance: VORICONAZOLE
     Indication: Antifungal prophylaxis
     Dosage: UNK
     Route: 065

REACTIONS (8)
  - Disseminated aspergillosis [Fatal]
  - Aspergillus infection [Fatal]
  - Cerebral fungal infection [Fatal]
  - Pneumonia fungal [Fatal]
  - Cardiac infection [Fatal]
  - Gastrointestinal fungal infection [Fatal]
  - Kidney infection [Fatal]
  - Drug ineffective [Fatal]
